FAERS Safety Report 9189400 (Version 2)
Quarter: 2013Q2

REPORT INFORMATION
  Report Type: Spontaneous
  Country: US (occurrence: None)
  Receive Date: 20120703
  Receipt Date: 20121031
  Transmission Date: 20140414
  Serious: No
  Sender: FDA-Public Use
  Company Number: PHEH2012US009406

PATIENT
  Age: 57 Year
  Sex: Female

DRUGS (18)
  1. GILENYA [Suspect]
     Indication: PLASMA CELL MYELOMA
     Route: 048
     Dates: start: 20110713
  2. SINGULAR (MONTELUKAST) [Concomitant]
  3. CELEBREX (CELECOXIB) [Concomitant]
  4. SOMA (CARISOPRODOL) [Concomitant]
  5. ULTRACET (PARACETAMOL, TRAMADOL HYDROCHLORIDE) [Concomitant]
  6. DICLOFENAC (DICLOFENAC) [Concomitant]
  7. BUPROPION (BUPROPION) [Concomitant]
  8. GABAPENTIN (GABAPENTIN) [Concomitant]
  9. LISINOPRIL (LISINOPRIL) [Concomitant]
  10. RANITIDINE (RANITIDINE) [Concomitant]
  11. HYDROCODONE W/APAP (HYDROCODONE, PARACETAMOL) [Concomitant]
  12. BACLOFEN (BACLOFEN) [Concomitant]
  13. NEXIUM (ESOMEPRAZOLE MAGNESIUM) [Concomitant]
  14. PAROXETIN ER (PAROXETINE) [Concomitant]
  15. SKELAXIN (METAXALONE) [Concomitant]
  16. CLONAZEPAM (CLONAZEPAM) (CLONAZEPAM) [Concomitant]
  17. DEXTROAMPHETAMINE ER (DEXAMFETAMINE) [Concomitant]
  18. ZANAFLEX (TIZANIDINE HYDROCHLORIDE) [Concomitant]

REACTIONS (2)
  - Hypersensitivity [None]
  - Condition aggravated [None]
